FAERS Safety Report 15864406 (Version 1)
Quarter: 2019Q1

REPORT INFORMATION
  Report Type: Spontaneous
  Country: US (occurrence: US)
  Receive Date: 20190124
  Receipt Date: 20190124
  Transmission Date: 20190417
  Serious: Yes (Other)
  Sender: FDA-Public Use
  Company Number: US-TEVA-2019-US-1001516

PATIENT
  Age: 3 Decade
  Sex: Female

DRUGS (4)
  1. HEROIN [Suspect]
     Active Substance: DIAMORPHINE
     Indication: ABDOMINAL PAIN
  2. OXYCODONE [Suspect]
     Active Substance: OXYCODONE
     Indication: CROHN^S DISEASE
     Dosage: INITIAL DOSAGES NOT STATED THEN PRESCRIBED AT 10-325MG EVERY 6 HOURS
     Route: 065
  3. HEROIN [Suspect]
     Active Substance: DIAMORPHINE
     Indication: CROHN^S DISEASE
     Route: 065
  4. OXYCODONE [Suspect]
     Active Substance: OXYCODONE
     Indication: ABDOMINAL PAIN

REACTIONS (3)
  - Off label use [Unknown]
  - Drug use disorder [Unknown]
  - Maternal exposure during pregnancy [Unknown]
